FAERS Safety Report 7664881-0 (Version None)
Quarter: 2011Q3

REPORT INFORMATION
  Report Type: 
  Country: None (occurrence: None)
  Receive Date: 20110806
  Receipt Date: 20110203
  Transmission Date: 20111222
  Serious: No
  Sender: FDA-Public Use
  Company Number: US-ABBOTT-11P-163-0703530-00

PATIENT
  Sex: Male
  Weight: 101.7 kg

DRUGS (6)
  1. HYDROCHLOROTHIAZIDE [Concomitant]
     Indication: FLUID RETENTION
  2. METFORMIN HCL [Concomitant]
     Indication: DIABETES MELLITUS
  3. SIMVASTATIN [Concomitant]
     Indication: BLOOD CHOLESTEROL INCREASED
  4. NIASPAN [Suspect]
     Indication: BLOOD CHOLESTEROL INCREASED
     Dates: start: 20101221, end: 20110111
  5. NIASPAN [Suspect]
     Dates: start: 20110112
  6. METOPROLOL TARTRATE [Concomitant]
     Indication: HYPERTENSION

REACTIONS (1)
  - FLUSHING [None]
